FAERS Safety Report 5123736-6 (Version None)
Quarter: 2006Q4

REPORT INFORMATION
  Report Type: 
  Country: None (occurrence: None)
  Receive Date: 20061010
  Receipt Date: 20060928
  Transmission Date: 20070319
  Serious: Yes (Hospitalization, Other)
  Sender: FDA-Public Use
  Company Number: US-PURDUE-USA_2006_0025283

PATIENT
  Age: 83 Year
  Sex: Female

DRUGS (1)
  1. MORPHINE SULFATE [Suspect]
     Indication: PAIN
     Dosage: 30 MG, Q8H
     Dates: start: 20060922, end: 20060926

REACTIONS (9)
  - ABNORMAL SLEEP-RELATED EVENT [None]
  - CATATONIA [None]
  - DEMENTIA [None]
  - DIET REFUSAL [None]
  - LETHARGY [None]
  - LOSS OF CONSCIOUSNESS [None]
  - MEMORY IMPAIRMENT [None]
  - SOMNOLENCE [None]
  - TREMOR [None]
